FAERS Safety Report 7173726-7 (Version None)
Quarter: 2010Q4

REPORT INFORMATION
  Report Type: 
  Country: None (occurrence: None)
  Receive Date: 20101219
  Receipt Date: 20100308
  Transmission Date: 20110411
  Serious: No
  Sender: FDA-Public Use
  Company Number: US-AMGEN-KDL392909

PATIENT

DRUGS (15)
  1. ENBREL [Suspect]
     Indication: RHEUMATOID ARTHRITIS
     Dosage: 25 MG, 2 TIMES/WK
     Route: 058
     Dates: start: 20010101
  2. FOLIC ACID [Concomitant]
     Dosage: UNK UNK, UNK
  3. ERGOCALCIFEROL [Concomitant]
     Dosage: UNK UNK, UNK
  4. DICLOFENAC [Concomitant]
     Dosage: 75 MG, UNK
  5. METOPROLOL [Concomitant]
     Dosage: UNK UNK, UNK
  6. ZOLPIDEM TARTRATE [Concomitant]
     Dosage: UNK UNK, UNK
  7. ACETAMINOPHEN AND HYDROCODONE BITARTRATE [Concomitant]
     Dosage: UNK UNK, UNK
  8. IBANDRONATE SODIUM [Concomitant]
     Dosage: UNK UNK, UNK
  9. MONTELUKAST [Concomitant]
     Dosage: UNK UNK, UNK
  10. PREGABALIN [Concomitant]
     Dosage: UNK UNK, UNK
  11. EZETIMIBE/SIMVASTATIN [Concomitant]
     Dosage: UNK UNK, UNK
  12. TOPROL-XL [Concomitant]
  13. DESLORATADINE [Concomitant]
  14. UNSPECIFIED MEDICATION [Concomitant]
     Dosage: UNK UNK, UNK
  15. PRAMINPEXOLE DIHYDROCHLORIDE [Concomitant]

REACTIONS (1)
  - LIGAMENT RUPTURE [None]
